FAERS Safety Report 4870117-6 (Version None)
Quarter: 2005Q4

REPORT INFORMATION
  Report Type: 
  Country: None (occurrence: None)
  Receive Date: 20051229
  Receipt Date: 20051229
  Transmission Date: 20060501
  Serious: No
  Sender: FDA-Public Use
  Company Number: None

PATIENT
  Sex: Female

DRUGS (1)
  1. NORTREL 1/35-28 [Suspect]
     Indication: CONTRACEPTION
     Dosage: 1 PO QD
     Route: 048
     Dates: start: 20051004

REACTIONS (2)
  - METRORRHAGIA [None]
  - THERAPEUTIC RESPONSE UNEXPECTED WITH DRUG SUBSTITUTION [None]
